FAERS Safety Report 7877071-3 (Version None)
Quarter: 2011Q4

REPORT INFORMATION
  Report Type: 
  Country: None (occurrence: None)
  Receive Date: 20111031
  Receipt Date: 20111027
  Transmission Date: 20120403
  Serious: Yes (Life-Threatening)
  Sender: FDA-Public Use
  Company Number: PHHY2011GB94801

PATIENT
  Sex: Male

DRUGS (12)
  1. ASPIRIN [Concomitant]
  2. LOPERAMIDE HCL [Concomitant]
  3. MIRTAZAPINE [Suspect]
     Indication: DEPRESSED MOOD
     Dosage: 15 MG, QD
     Route: 048
     Dates: start: 20111003, end: 20111006
  4. CLOZAPINE [Concomitant]
     Dosage: 775 MG, QD
     Route: 048
     Dates: start: 20111006, end: 20111007
  5. SIMVASTATIN [Concomitant]
  6. DIPYRIDAMOLE [Concomitant]
  7. HYOSCINE HYDROBROMIDE [Concomitant]
  8. OMEPRAZOLE [Concomitant]
  9. MIRTAZAPINE [Suspect]
     Dosage: 15 MG, QD
     Route: 048
     Dates: start: 20111006, end: 20111010
  10. CLOZAPINE [Concomitant]
     Indication: SCHIZOPHRENIA
     Dosage: 750 MG, QD
     Route: 048
     Dates: end: 20111006
  11. AMOXICILLIN AND CLAVULANATE POTASSIUM [Concomitant]
     Indication: INFECTION
     Dosage: 625 MG, TID
     Route: 048
     Dates: start: 20111006
  12. BENZODIAZEPINES [Concomitant]

REACTIONS (1)
  - NEUROLEPTIC MALIGNANT SYNDROME [None]
